FAERS Safety Report 23832102 (Version 6)
Quarter: 2024Q2

REPORT INFORMATION
  Report Type: Spontaneous
  Country: US (occurrence: US)
  Receive Date: 20240508
  Receipt Date: 20240625
  Transmission Date: 20240716
  Serious: No
  Sender: FDA-Public Use
  Company Number: US-PFIZER INC-202400102091

PATIENT
  Age: 14 Year
  Sex: Male
  Weight: 40.3 kg

DRUGS (1)
  1. GENOTROPIN [Suspect]
     Active Substance: SOMATROPIN
     Indication: Growth hormone deficiency
     Dosage: 1.8 MG, DAILY
     Route: 058
     Dates: start: 202404, end: 20240507

REACTIONS (4)
  - Device leakage [Recovered/Resolved]
  - Product deposit [Recovered/Resolved]
  - Device breakage [Recovered/Resolved]
  - Drug dose omission by device [Recovered/Resolved]

NARRATIVE: CASE EVENT DATE: 20240101
